FAERS Safety Report 7501871-2 (Version None)
Quarter: 2011Q2

REPORT INFORMATION
  Report Type: 
  Country: None (occurrence: None)
  Receive Date: 20110523
  Receipt Date: 20110523
  Transmission Date: 20111010
  Serious: Yes (Disabling)
  Sender: FDA-Public Use
  Company Number: None

PATIENT
  Age: 53 Year
  Sex: Female
  Weight: 84.1 kg

DRUGS (1)
  1. AVELOX [Suspect]
     Indication: SINUSITIS
     Dosage: 400MG QD PO
     Route: 048
     Dates: start: 20110211, end: 20110220

REACTIONS (5)
  - BLINDNESS [None]
  - VISUAL FIELD DEFECT [None]
  - PIGMENT DISPERSION SYNDROME [None]
  - OPTIC NERVE DISORDER [None]
  - GLAUCOMA [None]
